FAERS Safety Report 15037696 (Version 2)
Quarter: 2018Q3

REPORT INFORMATION
  Report Type: Report from Study
  Country: DE (occurrence: DE)
  Receive Date: 20180620
  Receipt Date: 20180702
  Transmission Date: 20181010
  Serious: Yes (Hospitalization, Other)
  Sender: FDA-Public Use
  Company Number: DE-SHIRE-DE201821354AA

PATIENT

DRUGS (1)
  1. FACTOR VIII INHIBITOR BYPASSING FRACTION; BAXJECT II NF [Suspect]
     Active Substance: ANTI-INHIBITOR COAGULANT COMPLEX
     Indication: FACTOR VIII DEFICIENCY
     Dosage: (2500), AS REQ^D
     Route: 042
     Dates: start: 20150819

REACTIONS (5)
  - Fall [Not Recovered/Not Resolved]
  - Device related infection [Unknown]
  - Vomiting [Unknown]
  - Influenza like illness [Unknown]
  - Pyrexia [Unknown]

NARRATIVE: CASE EVENT DATE: 20180531
